FAERS Safety Report 8021969-2 (Version None)
Quarter: 2012Q1

REPORT INFORMATION
  Report Type: 
  Country: None (occurrence: None)
  Receive Date: 20120104
  Receipt Date: 20111230
  Transmission Date: 20120608
  Serious: Yes (Death, Hospitalization)
  Sender: FDA-Public Use
  Company Number: PHFR2011GB006606

PATIENT
  Sex: Male

DRUGS (2)
  1. VANCOMYCIN [Suspect]
     Indication: ENDOCARDITIS
     Dosage: UNK UKN, UNK
  2. CUBICIN [Suspect]
     Indication: ENDOCARDITIS
     Dosage: 500 MG, QD

REACTIONS (3)
  - DEATH [None]
  - DRUG INEFFECTIVE [None]
  - ENDOCARDITIS [None]
